FAERS Safety Report 4800887-4 (Version None)
Quarter: 2005Q4

REPORT INFORMATION
  Report Type: 
  Country: None (occurrence: None)
  Receive Date: 20051017
  Receipt Date: 20050314
  Transmission Date: 20060501
  Serious: Yes (Death, Life-Threatening, Hospitalization)
  Sender: FDA-Public Use
  Company Number: PHRM2005FR01034

PATIENT
  Age: 54 Year
  Sex: Female
  Weight: 66 kg

DRUGS (1)
  1. GLEEVEC [Suspect]
     Indication: CHRONIC MYELOID LEUKAEMIA
     Dosage: 400 MG, QD
     Route: 048
     Dates: start: 20040305, end: 20040930

REACTIONS (27)
  - ANOREXIA [None]
  - ASTHENIA [None]
  - ATELECTASIS [None]
  - BRONCHIAL OBSTRUCTION [None]
  - C-REACTIVE PROTEIN INCREASED [None]
  - CEREBROVASCULAR DISORDER [None]
  - CHEST PAIN [None]
  - COUGH [None]
  - DYSPNOEA [None]
  - ELECTROCARDIOGRAM REPOLARISATION ABNORMALITY [None]
  - HAEMOGLOBIN DECREASED [None]
  - HEPATOMEGALY [None]
  - HYPERHIDROSIS [None]
  - LUNG ADENOCARCINOMA [None]
  - METASTASES TO LUNG [None]
  - NAUSEA [None]
  - NEURON-SPECIFIC ENOLASE INCREASED [None]
  - OEDEMA PERIPHERAL [None]
  - PLATELET COUNT DECREASED [None]
  - PLEURAL EFFUSION [None]
  - PLEURAL FIBROSIS [None]
  - SPLENOMEGALY [None]
  - SPUTUM DISCOLOURED [None]
  - TACHYCARDIA [None]
  - THORACIC CAVITY DRAINAGE [None]
  - TUMOUR HAEMORRHAGE [None]
  - WEIGHT DECREASED [None]
